FAERS Safety Report 13706571 (Version 1)
Quarter: 2017Q2

REPORT INFORMATION
  Report Type: Spontaneous
  Country: US (occurrence: US)
  Receive Date: 20170630
  Receipt Date: 20170630
  Transmission Date: 20170830
  Serious: No
  Sender: FDA-Public Use
  Company Number: US-JNJFOC-20161211532

PATIENT
  Sex: Female
  Weight: 77.11 kg

DRUGS (2)
  1. CONCERTA [Suspect]
     Active Substance: METHYLPHENIDATE HYDROCHLORIDE
     Indication: ATTENTION DEFICIT/HYPERACTIVITY DISORDER
     Dosage: REINITIATED 2 MONTHS AGO
     Route: 048
     Dates: start: 2016
  2. CONCERTA [Suspect]
     Active Substance: METHYLPHENIDATE HYDROCHLORIDE
     Indication: ATTENTION DEFICIT/HYPERACTIVITY DISORDER
     Dosage: STARTED 6 MONTHS AGO AND STOPPED 3 MONTHS AGO
     Route: 048
     Dates: start: 2016, end: 2016

REACTIONS (3)
  - Weight decreased [Not Recovered/Not Resolved]
  - Disturbance in attention [Unknown]
  - Restlessness [Not Recovered/Not Resolved]

NARRATIVE: CASE EVENT DATE: 2016
